FAERS Safety Report 10277346 (Version 1)
Quarter: 2014Q3

REPORT INFORMATION
  Report Type: Spontaneous
  Country: US (occurrence: US)
  Receive Date: 20140703
  Receipt Date: 20140703
  Transmission Date: 20150326
  Serious: No
  Sender: FDA-Public Use
  Company Number: US-MALLINCKRODT-T201304382

PATIENT
  Sex: Male
  Weight: 75.74 kg

DRUGS (8)
  1. OXYCODONE [Suspect]
     Active Substance: OXYCODONE
     Indication: BACK PAIN
     Dosage: 15 MG, EVERY 4 HOURS
     Route: 048
     Dates: start: 2009
  2. BENICAR [Concomitant]
     Active Substance: OLMESARTAN MEDOXOMIL
     Indication: BLOOD PRESSURE
     Dosage: 20 MG, UNK
  3. MORPHINE SULFATE EXTENDED RELEASE [Suspect]
     Active Substance: MORPHINE SULFATE
     Indication: BACK PAIN
     Dosage: 15MG, BID
     Route: 048
  4. LIPITOR [Concomitant]
     Active Substance: ATORVASTATIN CALCIUM
     Indication: BLOOD CHOLESTEROL
     Dosage: 10 MG, UNK
  5. CELEBREX [Concomitant]
     Active Substance: CELECOXIB
     Dosage: 200 MG, UNK
  6. PROTONIX [Concomitant]
     Active Substance: PANTOPRAZOLE SODIUM
     Dosage: 40 MG, UNK
  7. VALIUM [Concomitant]
     Active Substance: DIAZEPAM
     Dosage: 5MG, 2 TABLETS, BID
     Dates: start: 201308
  8. HYDROCODONE [Concomitant]
     Active Substance: HYDROCODONE
     Dosage: 2 MG, TID
     Dates: start: 201308

REACTIONS (1)
  - Tinnitus [Not Recovered/Not Resolved]
